FAERS Safety Report 8472376-X (Version None)
Quarter: 2012Q2

REPORT INFORMATION
  Report Type: 
  Country: None (occurrence: None)
  Receive Date: 20120323
  Receipt Date: 20111221
  Transmission Date: 20120825
  Serious: Yes (Other)
  Sender: FDA-Public Use
  Company Number: 163-21880-11103127

PATIENT
  Age: 80 Year
  Sex: Female

DRUGS (13)
  1. PERCOCET [Concomitant]
  2. PROCRIT [Concomitant]
  3. BLOOD (BLOOD AND RELATED PRODUCTS) [Concomitant]
  4. CEFTAZIDINE (CEFTAZIDIME) [Concomitant]
  5. OXYCONTIN [Concomitant]
  6. DEXAMETHASONE [Concomitant]
  7. PACKED RED BLOOD CELLS (RED BLOOD CELLS) [Concomitant]
  8. VELCADE [Concomitant]
  9. CYTOXAN [Concomitant]
  10. REVLIMID [Suspect]
     Indication: MULTIPLE MYELOMA
     Dosage: 25;10 MG, QD, 3 WEEKS, PO
     Route: 048
     Dates: start: 20100501
  11. REVLIMID [Suspect]
     Indication: MULTIPLE MYELOMA
     Dosage: 25;10 MG, QD, 3 WEEKS, PO
     Route: 048
     Dates: start: 20080505
  12. REVLIMID [Suspect]
     Indication: MULTIPLE MYELOMA
     Dosage: 25;10 MG, QD, 3 WEEKS, PO
     Route: 048
     Dates: start: 20110901, end: 20111213
  13. REVLIMID [Suspect]
     Indication: MULTIPLE MYELOMA
     Dosage: 25;10 MG, QD, 3 WEEKS, PO
     Route: 048
     Dates: start: 20080429

REACTIONS (2)
  - HAEMOGLOBIN DECREASED [None]
  - URINARY TRACT INFECTION [None]
